FAERS Safety Report 5933269-2 (Version None)
Quarter: 2008Q4

REPORT INFORMATION
  Report Type: 
  Country: None (occurrence: None)
  Receive Date: 20081028
  Receipt Date: 20081028
  Transmission Date: 20090506
  Serious: Yes (Hospitalization)
  Sender: FDA-Public Use
  Company Number: JP-B.I. PHARMACEUTICALS,INC./RIDGEFIELD-2008-BP-14431NB

PATIENT
  Sex: Male
  Weight: 65 kg

DRUGS (8)
  1. MOBIC [Suspect]
     Indication: OSTEOARTHRITIS
     Dosage: 10MG
     Route: 048
     Dates: start: 20080109, end: 20080206
  2. RIMATIL [Suspect]
     Indication: OSTEOARTHRITIS
     Dosage: 100MG
     Route: 048
     Dates: start: 20080109, end: 20080206
  3. ADALAT [Concomitant]
     Indication: HYPERTENSION
     Dosage: 20MG
     Route: 065
     Dates: start: 19961101
  4. BLOPRESS [Concomitant]
     Indication: HYPERTENSION
     Dosage: 8MG
     Route: 048
     Dates: start: 19961101
  5. LASIX [Concomitant]
     Indication: HYPERTENSION
     Dosage: 20MG
     Route: 048
     Dates: start: 19961101
  6. THYRADIN [Concomitant]
     Indication: HYPOTHYROIDISM
     Route: 048
     Dates: start: 19960101
  7. MAGMITT [Concomitant]
     Indication: CONSTIPATION
     Dosage: 500MG
     Route: 048
     Dates: start: 20020101
  8. SUCRALFATE [Concomitant]
     Indication: CONSTIPATION
     Dosage: 3G
     Route: 048
     Dates: start: 20020101

REACTIONS (5)
  - DERMATITIS EXFOLIATIVE [None]
  - ERYTHEMA [None]
  - LIVER DISORDER [None]
  - OEDEMA [None]
  - PLEURAL EFFUSION [None]
